FAERS Safety Report 8208870-6 (Version None)
Quarter: 2012Q1

REPORT INFORMATION
  Report Type: 
  Country: None (occurrence: None)
  Receive Date: 20120314
  Receipt Date: 20120301
  Transmission Date: 20120608
  Serious: Yes (Hospitalization)
  Sender: FDA-Public Use
  Company Number: NL-ROCHE-1044975

PATIENT
  Sex: Female

DRUGS (7)
  1. VINCRISTINE SULFATE [Suspect]
     Indication: DIFFUSE LARGE B-CELL LYMPHOMA
     Dosage: UNKNOWN
  2. DOXORUBICIN HCL [Suspect]
     Indication: DIFFUSE LARGE B-CELL LYMPHOMA
     Dosage: UNKNOWN
  3. CYCLOPHOSPHAMIDE [Suspect]
     Indication: DIFFUSE LARGE B-CELL LYMPHOMA
     Dosage: UNKNOWN
  4. PREDNISONE TAB [Suspect]
     Indication: DIFFUSE LARGE B-CELL LYMPHOMA
     Dosage: UNKNOWN
  5. MABTHERA [Suspect]
     Indication: DIFFUSE LARGE B-CELL LYMPHOMA
     Dosage: UNKNOWN
  6. METOPROLOL NOS [Suspect]
     Indication: HYPERTENSION
     Route: 048
     Dates: start: 20120103
  7. AMLODIPINE [Suspect]
     Indication: HYPERTENSION
     Route: 048

REACTIONS (3)
  - TRANSIENT ISCHAEMIC ATTACK [None]
  - ORTHOSTATIC HYPOTENSION [None]
  - FACIAL NERVE DISORDER [None]
